FAERS Safety Report 22587015 (Version 1)
Quarter: 2023Q2

REPORT INFORMATION
  Report Type: Report from Study
  Country: AU (occurrence: AU)
  Receive Date: 20230612
  Receipt Date: 20230612
  Transmission Date: 20230721
  Serious: Yes (Hospitalization)
  Sender: FDA-Public Use
  Company Number: AU-002147023-NVSC2023AU112826

PATIENT
  Age: 72 Year
  Sex: Male

DRUGS (4)
  1. PLUVICTO [Suspect]
     Active Substance: LUTETIUM LU-177 VIPIVOTIDE TETRAXETAN
     Indication: Hormone-refractory prostate cancer
     Dosage: 7.4 GBQ
     Route: 042
     Dates: start: 20221124
  2. NIVOLUMAB [Suspect]
     Active Substance: NIVOLUMAB
     Indication: Hormone-refractory prostate cancer
     Dosage: 65 MG
     Route: 042
     Dates: start: 20221123, end: 20221214
  3. IPILIMUMAB [Suspect]
     Active Substance: IPILIMUMAB
     Indication: Hormone-refractory prostate cancer
     Dosage: 196 MG
     Route: 042
     Dates: start: 20221123, end: 20221123
  4. VANCOMYCIN [Concomitant]
     Active Substance: VANCOMYCIN
     Indication: Steroid therapy
     Dosage: 125 MG, FOUR TIMES A DAY
     Route: 048
     Dates: start: 20230103, end: 20230104

REACTIONS (2)
  - Colitis [Unknown]
  - Diarrhoea [Recovered/Resolved]

NARRATIVE: CASE EVENT DATE: 20221221
